FAERS Safety Report 9241608 (Version 1)
Quarter: 2013Q2

REPORT INFORMATION
  Report Type: Spontaneous
  Country: US (occurrence: US)
  Receive Date: 20130419
  Receipt Date: 20130419
  Transmission Date: 20140414
  Serious: No
  Sender: FDA-Public Use
  Company Number: US-BAYER-2013-043757

PATIENT
  Sex: Female

DRUGS (1)
  1. GIANVI [Suspect]
     Indication: ACNE PUSTULAR
     Dosage: UNK
     Dates: start: 2010

REACTIONS (2)
  - Acne [None]
  - Drug ineffective [None]
